FAERS Safety Report 20821824 (Version 1)
Quarter: 2022Q2

REPORT INFORMATION
  Report Type: Spontaneous
  Country: ZW (occurrence: None)
  Receive Date: 20220510
  Receipt Date: 20220510
  Transmission Date: 20220721
  Serious: Yes (Life-Threatening, Disabling)
  Sender: FDA-Public Use
  Company Number: None

PATIENT
  Age: 25 Year
  Sex: Female
  Weight: 68 kg

DRUGS (1)
  1. OXYTOCIN [Suspect]
     Active Substance: OXYTOCIN

REACTIONS (14)
  - Hallucination [None]
  - Jaundice neonatal [None]
  - Anxiety [None]
  - Seizure [None]
  - Muscle spasms [None]
  - Stress [None]
  - Fear [None]
  - Chest pain [None]
  - Heart rate abnormal [None]
  - Hypertension [None]
  - Tinnitus [None]
  - Pregnancy [None]
  - Maternal drugs affecting foetus [None]
  - Exposure during pregnancy [None]

NARRATIVE: CASE EVENT DATE: 20180816
